FAERS Safety Report 5688872-4 (Version None)
Quarter: 2008Q1

REPORT INFORMATION
  Report Type: 
  Country: None (occurrence: None)
  Receive Date: 20080331
  Receipt Date: 20050907
  Transmission Date: 20080703
  Serious: Yes (Death)
  Sender: FDA-Public Use
  Company Number: CR-ROCHE-417033

PATIENT
  Age: 25 Year
  Sex: Male

DRUGS (1)
  1. XENICAL [Suspect]
     Route: 048
     Dates: start: 20050705

REACTIONS (4)
  - ABDOMINAL PAIN [None]
  - ABDOMINAL PAIN UPPER [None]
  - DEATH [None]
  - DYSCHEZIA [None]
